FAERS Safety Report 9280128 (Version 1)
Quarter: 2013Q2

REPORT INFORMATION
  Report Type: Spontaneous
  Country: US (occurrence: US)
  Receive Date: 20130509
  Receipt Date: 20130509
  Transmission Date: 20140414
  Serious: No
  Sender: FDA-Public Use
  Company Number: US-009507513-1305USA002649

PATIENT
  Age: 55 Year
  Sex: Female

DRUGS (6)
  1. PEGINTRON [Suspect]
     Indication: HEPATITIS C
     Dosage: 0.4 ML, QW
     Route: 058
     Dates: start: 201303
  2. REBETOL [Suspect]
     Dosage: UNK
  3. TELAPREVIR [Suspect]
     Dosage: UNK
  4. CLARITIN [Concomitant]
     Dosage: UNK
  5. OXYCODONE [Concomitant]
     Dosage: UNK
  6. NEURONTIN [Concomitant]
     Dosage: UNK

REACTIONS (3)
  - Rhinorrhoea [Recovered/Resolved]
  - Influenza like illness [Recovered/Resolved]
  - Drug dose omission [Unknown]
